FAERS Safety Report 20314657 (Version 2)
Quarter: 2022Q1

REPORT INFORMATION
  Report Type: Report from Study
  Country: US (occurrence: US)
  Receive Date: 20220110
  Receipt Date: 20220113
  Transmission Date: 20220423
  Serious: No
  Sender: FDA-Public Use
  Company Number: US-SUNOVION-2021SUN004734

PATIENT
  Age: 80 Year
  Sex: Female

DRUGS (1)
  1. KYNMOBI [Suspect]
     Active Substance: APOMORPHINE HYDROCHLORIDE
     Dosage: 10 MG
     Route: 060
     Dates: start: 20211217

REACTIONS (10)
  - Feeling hot [Recovering/Resolving]
  - Cold sweat [Recovering/Resolving]
  - Malaise [Recovering/Resolving]
  - Illness [Recovering/Resolving]
  - Fatigue [Recovering/Resolving]
  - Headache [Recovering/Resolving]
  - Somnolence [Not Recovered/Not Resolved]
  - Nausea [Recovering/Resolving]
  - Vomiting [Recovering/Resolving]
  - Blood pressure decreased [Unknown]

NARRATIVE: CASE EVENT DATE: 20211217
